FAERS Safety Report 6484549-6 (Version None)
Quarter: 2009Q4

REPORT INFORMATION
  Report Type: 
  Country: None (occurrence: None)
  Receive Date: 20091209
  Receipt Date: 20090529
  Transmission Date: 20100525
  Serious: No
  Sender: FDA-Public Use
  Company Number: US-AMGEN-KDL349201

PATIENT

DRUGS (5)
  1. ENBREL [Suspect]
     Indication: PSORIASIS
  2. HUMIRA [Concomitant]
     Indication: PSORIASIS
  3. SORIATANE [Concomitant]
     Indication: PSORIASIS
  4. CYCLOSPORINE [Concomitant]
     Indication: PSORIASIS
  5. UNSPECIFIED MEDICATION [Concomitant]

REACTIONS (1)
  - DRUG INEFFECTIVE [None]
